FAERS Safety Report 8204648-8 (Version None)
Quarter: 2012Q1

REPORT INFORMATION
  Report Type: 
  Country: None (occurrence: None)
  Receive Date: 20120313
  Receipt Date: 20120308
  Transmission Date: 20120608
  Serious: Yes (Other)
  Sender: FDA-Public Use
  Company Number: CA-AMGEN-CANSP2012013658

PATIENT
  Age: 78 Year
  Sex: Male

DRUGS (1)
  1. XGEVA [Suspect]
     Indication: PRODUCT USED FOR UNKNOWN INDICATION
     Dosage: 120 MG, UNK
     Dates: start: 20111208, end: 20120202

REACTIONS (5)
  - OSTEONECROSIS OF JAW [None]
  - EATING DISORDER [None]
  - ORAL DISCOMFORT [None]
  - TEMPOROMANDIBULAR JOINT SYNDROME [None]
  - STOMATITIS [None]
